FAERS Safety Report 7069750-5 (Version None)
Quarter: 2010Q4

REPORT INFORMATION
  Report Type: 
  Country: None (occurrence: None)
  Receive Date: 20101028
  Receipt Date: 20100527
  Transmission Date: 20110411
  Serious: No
  Sender: FDA-Public Use
  Company Number: US-WYE-H15438410

PATIENT
  Age: 64 Year
  Sex: Female

DRUGS (6)
  1. PROTONIX [Suspect]
     Indication: INFLAMMATION
     Route: 065
     Dates: start: 20040101
  2. CALCIUM CITRATE [Concomitant]
  3. VITAMINS [Concomitant]
  4. BONIVA [Concomitant]
  5. TEMAZEPAM [Concomitant]
  6. ASPIRIN [Concomitant]

REACTIONS (3)
  - FALL [None]
  - RADIUS FRACTURE [None]
  - UPPER LIMB FRACTURE [None]
